FAERS Safety Report 12108930 (Version 1)
Quarter: 2016Q1

REPORT INFORMATION
  Report Type: Spontaneous
  Country: US (occurrence: US)
  Receive Date: 20160224
  Receipt Date: 20160224
  Transmission Date: 20160526
  Serious: Yes (Other)
  Sender: FDA-Public Use
  Company Number: US-CIPLA LTD.-2016US01345

PATIENT

DRUGS (8)
  1. MITOMYCIN. [Suspect]
     Active Substance: MITOMYCIN
     Indication: FEMALE REPRODUCTIVE NEOPLASM
     Dosage: 20 MG/M2, UNK
  2. DOXORUBICIN [Suspect]
     Active Substance: DOXORUBICIN
     Dosage: 15 MG/M2, UNK
  3. 5-?UOROURACIL [Suspect]
     Active Substance: FLUOROURACIL
     Indication: FEMALE REPRODUCTIVE NEOPLASM
     Dosage: 535 MG, UNK
     Route: 042
  4. CARBOPLATIN. [Suspect]
     Active Substance: CARBOPLATIN
     Indication: FEMALE REPRODUCTIVE NEOPLASM
     Dosage: 750-800 MG PER M2
  5. CISPLATIN. [Suspect]
     Active Substance: CISPLATIN
     Dosage: 40 MG/M2, UNK
  6. DOXORUBICIN [Suspect]
     Active Substance: DOXORUBICIN
     Indication: FEMALE REPRODUCTIVE NEOPLASM
     Dosage: 12 MG/M2, UNK
  7. OXALIPLATIN. [Suspect]
     Active Substance: OXALIPLATIN
     Indication: FEMALE REPRODUCTIVE NEOPLASM
     Dosage: 460 MG/M2, UNK
  8. CISPLATIN. [Suspect]
     Active Substance: CISPLATIN
     Indication: FEMALE REPRODUCTIVE NEOPLASM
     Dosage: 75 MG/M2, UNK

REACTIONS (1)
  - Urinary tract infection [Unknown]
